FAERS Safety Report 7127542-2 (Version None)
Quarter: 2010Q4

REPORT INFORMATION
  Report Type: 
  Country: None (occurrence: None)
  Receive Date: 20101129
  Receipt Date: 20100720
  Transmission Date: 20110411
  Serious: Yes (Other)
  Sender: FDA-Public Use
  Company Number: US-PFIZER INC-2010091285

PATIENT
  Sex: Male
  Weight: 78.912 kg

DRUGS (1)
  1. VIAGRA [Suspect]
     Dosage: 100 MG, 1X/DAY
     Route: 048
     Dates: start: 20100719

REACTIONS (3)
  - CIRCUMSTANCE OR INFORMATION CAPABLE OF LEADING TO MEDICATION ERROR [None]
  - CYANOPSIA [None]
  - VISION BLURRED [None]
